FAERS Safety Report 6478437-9 (Version None)
Quarter: 2009Q4

REPORT INFORMATION
  Report Type: 
  Country: None (occurrence: None)
  Receive Date: 20091202
  Receipt Date: 20091116
  Transmission Date: 20100525
  Serious: Yes (Hospitalization)
  Sender: FDA-Public Use
  Company Number: 1000009478

PATIENT
  Age: 85 Year
  Sex: Female

DRUGS (10)
  1. ESCITALOPRAM [Suspect]
     Indication: DEPRESSION
     Dosage: 10 MG (10 MG,1 IN 1 D),ORAL
     Route: 048
     Dates: start: 20090921, end: 20090923
  2. ALDACTONE [Suspect]
     Dosage: 75 MG (75 MG,1 IN 1 D)
  3. GLUCOPHAGE [Concomitant]
  4. LORAZEPAM [Concomitant]
  5. LEVOTHYROXINE SODIUM [Concomitant]
  6. TANAKAN [Concomitant]
  7. DAFALGAN [Concomitant]
  8. PROPOFAN [Concomitant]
  9. DIOSMINE [Concomitant]
  10. ARIXTRA [Concomitant]

REACTIONS (10)
  - BACTERIAL TEST POSITIVE [None]
  - CONFUSIONAL STATE [None]
  - CULTURE URINE POSITIVE [None]
  - DISORIENTATION [None]
  - ESCHERICHIA INFECTION [None]
  - FALL [None]
  - HAPTOGLOBIN INCREASED [None]
  - HYPONATRAEMIA [None]
  - MALAISE [None]
  - ORTHOSTATIC HYPOTENSION [None]
